APPROVED DRUG PRODUCT: FLUOR-OP
Active Ingredient: FLUOROMETHOLONE
Strength: 0.1%
Dosage Form/Route: SUSPENSION/DROPS;OPHTHALMIC
Application: A070185 | Product #001
Applicant: NOVARTIS PHARMACEUTICALS CORP
Approved: Feb 27, 1986 | RLD: No | RS: No | Type: DISCN